FAERS Safety Report 15703068 (Version 1)
Quarter: 2018Q4

REPORT INFORMATION
  Report Type: Spontaneous
  Country: US (occurrence: US)
  Receive Date: 20181208
  Receipt Date: 20181208
  Transmission Date: 20190205
  Serious: Yes (Other)
  Sender: FDA-Public Use
  Company Number: None

PATIENT
  Age: 65 Year
  Sex: Female
  Weight: 74.25 kg

DRUGS (1)
  1. DR. REDDY^S SUMATRIPTAN SUCCINATE 25MG [Suspect]
     Active Substance: SUMATRIPTAN SUCCINATE
     Indication: MIGRAINE
     Dosage: ?          QUANTITY:9 TABLET(S);?
     Route: 048
     Dates: start: 20181206, end: 20181208

REACTIONS (4)
  - Vomiting [None]
  - Product substitution issue [None]
  - Nausea [None]
  - Drug ineffective [None]

NARRATIVE: CASE EVENT DATE: 20181206
